FAERS Safety Report 6974699-X (Version None)
Quarter: 2010Q3

REPORT INFORMATION
  Report Type: 
  Country: None (occurrence: None)
  Receive Date: 20100909
  Receipt Date: 20081223
  Transmission Date: 20110219
  Serious: No
  Sender: FDA-Public Use
  Company Number: US-WYE-H07032808

PATIENT
  Age: 35 Year
  Sex: Male
  Weight: 88.53 kg

DRUGS (1)
  1. ADVIL PM [Suspect]
     Indication: INSOMNIA
     Dosage: 2 CAPLETS BEFORE SLEEP
     Route: 048
     Dates: start: 20081128

REACTIONS (3)
  - DRUG EFFECT DECREASED [None]
  - DRUG EFFECT PROLONGED [None]
  - SOMNOLENCE [None]
